FAERS Safety Report 5385337-4 (Version None)
Quarter: 2007Q3

REPORT INFORMATION
  Report Type: 
  Country: None (occurrence: None)
  Receive Date: 20070712
  Receipt Date: 20070702
  Transmission Date: 20080115
  Serious: Yes (Hospitalization)
  Sender: FDA-Public Use
  Company Number: US-JNJFOC-20070601837

PATIENT
  Age: 51 Year
  Sex: Female
  Weight: 71.22 kg

DRUGS (2)
  1. REMICADE [Suspect]
     Indication: CROHN'S DISEASE
     Route: 042
  2. PREDNISONE [Concomitant]

REACTIONS (5)
  - BRADYCARDIA [None]
  - DYSTONIA [None]
  - PNEUMONIA KLEBSIELLA [None]
  - SEPSIS [None]
  - SINUS ARREST [None]
